FAERS Safety Report 21274905 (Version 1)
Quarter: 2022Q3

REPORT INFORMATION
  Report Type: Spontaneous
  Country: FR (occurrence: FR)
  Receive Date: 20220831
  Receipt Date: 20220831
  Transmission Date: 20221027
  Serious: Yes (Death, Other)
  Sender: FDA-Public Use
  Company Number: None

PATIENT
  Age: 52 Year
  Sex: Male
  Weight: 96 kg

DRUGS (13)
  1. LINEZOLID [Suspect]
     Active Substance: LINEZOLID
     Indication: Infection
     Dosage: UNK
     Dates: start: 20180816, end: 20180823
  2. ACYCLOVIR [Suspect]
     Active Substance: ACYCLOVIR
     Indication: Infection
     Dosage: UNK
     Route: 042
     Dates: start: 20180818, end: 20180824
  3. EMEND [Suspect]
     Active Substance: APREPITANT
     Indication: Nausea
     Route: 048
     Dates: start: 20180806, end: 20180816
  4. IMIPENEM [Suspect]
     Active Substance: IMIPENEM
     Indication: Infection
     Dosage: UNK
     Dates: start: 20180820, end: 20180824
  5. PANTOPRAZOLE SODIUM [Suspect]
     Active Substance: PANTOPRAZOLE SODIUM
     Indication: Nausea
     Dosage: UNK
     Route: 048
     Dates: start: 20180806, end: 20180816
  6. CYCLOPHOSPHAMIDE [Suspect]
     Active Substance: CYCLOPHOSPHAMIDE
     Indication: Bone marrow transplant
     Dosage: UNK
     Route: 041
     Dates: start: 20180810, end: 20180811
  7. METRONIDAZOLE [Suspect]
     Active Substance: METRONIDAZOLE
     Indication: Infection
     Dosage: UNK
     Route: 041
     Dates: start: 20180816, end: 20180823
  8. PIPERACILLIN SODIUM\TAZOBACTAM SODIUM [Suspect]
     Active Substance: PIPERACILLIN SODIUM\TAZOBACTAM SODIUM
     Indication: Infection
     Dosage: UNK
     Route: 041
     Dates: start: 20180815, end: 20180820
  9. ONDANSETRON [Suspect]
     Active Substance: ONDANSETRON
     Indication: Nausea
     Dosage: UNK
     Route: 042
     Dates: start: 20180807, end: 20180816
  10. CYCLOSPORINE [Suspect]
     Active Substance: CYCLOSPORINE
     Indication: Bone marrow transplant
     Dosage: UNK
     Route: 041
     Dates: start: 20180811, end: 20180824
  11. CORDARONE [Suspect]
     Active Substance: AMIODARONE HYDROCHLORIDE
     Indication: Atrial fibrillation
     Dates: start: 20180816, end: 20180822
  12. IOBITRIDOL [Suspect]
     Active Substance: IOBITRIDOL
     Indication: Computerised tomogram
     Dosage: UNK
     Dates: start: 20180816, end: 20180816
  13. MYCAMINE [Suspect]
     Active Substance: MICAFUNGIN SODIUM
     Indication: Infection
     Dosage: UNK
     Route: 041
     Dates: start: 20180817, end: 20180823

REACTIONS (2)
  - Toxic epidermal necrolysis [Fatal]
  - Toxic epidermal necrolysis [Fatal]

NARRATIVE: CASE EVENT DATE: 20180821
